FAERS Safety Report 23029525 (Version 1)
Quarter: 2023Q4

REPORT INFORMATION
  Report Type: Spontaneous
  Country: US (occurrence: US)
  Receive Date: 20231004
  Receipt Date: 20231004
  Transmission Date: 20240109
  Serious: No
  Sender: FDA-Public Use
  Company Number: US-Kaleo, Inc.-2023KL000053

PATIENT
  Age: 5 Year
  Sex: Female

DRUGS (1)
  1. AUVI-Q [Suspect]
     Active Substance: EPINEPHRINE

REACTIONS (3)
  - Device issue [Not Recovered/Not Resolved]
  - Device optical issue [Not Recovered/Not Resolved]
  - Device audio issue [Not Recovered/Not Resolved]
